FAERS Safety Report 5944816-9 (Version None)
Quarter: 2008Q4

REPORT INFORMATION
  Report Type: 
  Country: None (occurrence: None)
  Receive Date: 20081107
  Receipt Date: 20081029
  Transmission Date: 20090506
  Serious: No
  Sender: FDA-Public Use
  Company Number: US-BAYER-200814234BCC

PATIENT
  Age: 61 Year
  Sex: Female
  Weight: 73 kg

DRUGS (5)
  1. ALEVE [Suspect]
     Indication: ANALGESIA
     Route: 048
     Dates: start: 20080801
  2. CHLORPHENIRAMINE MALEATE AND PSEUDOEPHEDRINE HCL [Concomitant]
  3. ALLEGRA [Concomitant]
  4. SYNTHROID [Concomitant]
  5. FLUTICASONE PROPIONATE [Concomitant]

REACTIONS (1)
  - BLOOD PRESSURE SYSTOLIC INCREASED [None]
